FAERS Safety Report 8356535-2 (Version None)
Quarter: 2012Q2

REPORT INFORMATION
  Report Type: 
  Country: None (occurrence: None)
  Receive Date: 20120514
  Receipt Date: 20120507
  Transmission Date: 20120825
  Serious: Yes (Other)
  Sender: FDA-Public Use
  Company Number: PHHY2012CA029372

PATIENT
  Sex: Male

DRUGS (4)
  1. EXELON [Suspect]
     Indication: DEMENTIA ALZHEIMER'S TYPE
     Dosage: 4.6 MG, QD
     Route: 062
     Dates: start: 20120321, end: 20120328
  2. MICARDIS [Concomitant]
     Dosage: EVERY MORNING
  3. CALCIUM [Concomitant]
     Dosage: EVERY DAY
  4. VITAMIN B-12 [Concomitant]
     Dosage: UNK

REACTIONS (3)
  - SPEECH DISORDER [None]
  - CONFUSIONAL STATE [None]
  - APPLICATION SITE ERYTHEMA [None]
